FAERS Safety Report 5025069-5 (Version None)
Quarter: 2006Q2

REPORT INFORMATION
  Report Type: 
  Country: None (occurrence: None)
  Receive Date: 20060613
  Receipt Date: 20060516
  Transmission Date: 20061013
  Serious: Yes (Other)
  Sender: FDA-Public Use
  Company Number: PHEH2006US06380

PATIENT
  Age: 63 Year
  Sex: Female

DRUGS (1)
  1. LAMISIL [Suspect]
     Indication: NAIL TINEA
     Dosage: 250 MG, QD
     Route: 048
     Dates: start: 20060410, end: 20060512

REACTIONS (4)
  - AGEUSIA [None]
  - ANOSMIA [None]
  - CHROMATURIA [None]
  - WEIGHT DECREASED [None]
